FAERS Safety Report 5131356-2 (Version None)
Quarter: 2006Q4

REPORT INFORMATION
  Report Type: 
  Country: None (occurrence: None)
  Receive Date: 20061016
  Receipt Date: 20061003
  Transmission Date: 20070319
  Serious: Yes (Life-Threatening, Hospitalization, Disabling)
  Sender: FDA-Public Use
  Company Number: 2005051115

PATIENT
  Age: 51 Year
  Sex: Male
  Weight: 65.5 kg

DRUGS (2)
  1. SUTENT [Suspect]
     Indication: NEUROENDOCRINE CARCINOMA
     Dosage: 50 MG (25 MG,2 IN 1D), ORAL
     Route: 048
     Dates: start: 20050307
  2. HYDROMORPHONE HCL [Concomitant]

REACTIONS (11)
  - ARTERIAL DISORDER [None]
  - BACTERIAL SEPSIS [None]
  - CARCINOID TUMOUR [None]
  - HEADACHE [None]
  - HYPOTENSION [None]
  - METASTATIC NEOPLASM [None]
  - NASOPHARYNGEAL DISORDER [None]
  - OBSTRUCTION [None]
  - SYNCOPE VASOVAGAL [None]
  - VEIN DISORDER [None]
  - VISION BLURRED [None]
